FAERS Safety Report 8958375 (Version 1)
Quarter: 2012Q4

REPORT INFORMATION
  Report Type: 
  Country: US (occurrence: US)
  Receive Date: 20121210
  Receipt Date: 20121210
  Transmission Date: 20130627
  Serious: Yes (Death)
  Sender: FDA-Public Use
  Company Number: US-GLAXOSMITHKLINE-A1004615A

PATIENT
  Age: 68 Year
  Sex: Male

DRUGS (10)
  1. VOTRIENT [Suspect]
     Indication: MALIGNANT URINARY TRACT NEOPLASM
     Dosage: 200MG See dosage text
     Route: 048
     Dates: start: 20120522, end: 20121201
  2. AMLODIPINE [Concomitant]
  3. BUFFERIN [Concomitant]
  4. FISH OIL [Concomitant]
  5. VITAMIN D3 [Concomitant]
  6. LIPITOR [Concomitant]
  7. LOSARTAN [Concomitant]
  8. AVODART [Concomitant]
  9. JANUVIA [Concomitant]
  10. METFORMIN [Concomitant]

REACTIONS (1)
  - Death [Fatal]
